FAERS Safety Report 10065350 (Version 1)
Quarter: 2014Q2

REPORT INFORMATION
  Report Type: Spontaneous
  Country: US (occurrence: None)
  Receive Date: 20140404
  Receipt Date: 20140404
  Transmission Date: 20141212
  Serious: Yes (Other)
  Sender: FDA-Public Use
  Company Number: SYM-2014-19164

PATIENT
  Sex: Female

DRUGS (1)
  1. TARGRETIN [Suspect]
     Indication: MYCOSIS FUNGOIDES STAGE IV

REACTIONS (1)
  - Type 1 diabetes mellitus [None]
